FAERS Safety Report 15224917 (Version 4)
Quarter: 2019Q1

REPORT INFORMATION
  Report Type: Spontaneous
  Country: JP (occurrence: JP)
  Receive Date: 20180731
  Receipt Date: 20190314
  Transmission Date: 20190417
  Serious: No
  Sender: FDA-Public Use
  Company Number: JP-009507513-1807JPN002942J

PATIENT
  Age: 35 Year
  Sex: Female
  Weight: 36 kg

DRUGS (6)
  1. REMERON [Suspect]
     Active Substance: MIRTAZAPINE
     Indication: DEPRESSION
     Dosage: 5 MILLIGRAM, QD
     Route: 048
     Dates: start: 201802, end: 20180302
  2. HALIZON [Suspect]
     Active Substance: AMPHOTERICIN B
     Indication: ORAL CANDIDIASIS
     Dosage: 1 MILLIGRAM, QID
     Route: 048
     Dates: start: 201802, end: 20180316
  3. METOCLOPRAMIDE. [Suspect]
     Active Substance: METOCLOPRAMIDE
     Indication: NAUSEA
     Dosage: 5 MILLIGRAM, BID
     Route: 048
     Dates: start: 201802, end: 201804
  4. SHAKUYAKUKANZOTO [Suspect]
     Active Substance: HERBALS
     Indication: HICCUPS
     Dosage: 1 DOSAGE FORM, TID
     Route: 048
     Dates: start: 201802, end: 20180313
  5. LUNESTA [Suspect]
     Active Substance: ESZOPICLONE
     Indication: INSOMNIA
     Dosage: 2 MILLIGRAM, BID
     Route: 048
     Dates: start: 20180309, end: 20180313
  6. REMERON [Suspect]
     Active Substance: MIRTAZAPINE
     Dosage: 15 MILLIGRAM, QD
     Route: 048
     Dates: start: 20180302, end: 20180313

REACTIONS (1)
  - Hepatic function abnormal [Recovered/Resolved]

NARRATIVE: CASE EVENT DATE: 20180313
